FAERS Safety Report 18371205 (Version 6)
Quarter: 2021Q2

REPORT INFORMATION
  Report Type: Spontaneous
  Country: US (occurrence: US)
  Receive Date: 20201012
  Receipt Date: 20210623
  Transmission Date: 20210717
  Serious: No
  Sender: FDA-Public Use
  Company Number: US-PFIZER INC-2020387981

PATIENT
  Age: 66 Year
  Sex: Male

DRUGS (1)
  1. EUCRISA [Suspect]
     Active Substance: CRISABOROLE
     Indication: ECZEMA
     Dosage: UNK, 2X/DAY (APPLY TO SKIN TWICE DAILY)
     Dates: start: 201806

REACTIONS (4)
  - Blood blister [Unknown]
  - Stress [Unknown]
  - Skin atrophy [Unknown]
  - Condition aggravated [Unknown]
